FAERS Safety Report 9345775 (Version 2)
Quarter: 2013Q2

REPORT INFORMATION
  Report Type: Spontaneous
  Country: US (occurrence: US)
  Receive Date: 20130613
  Receipt Date: 20130628
  Transmission Date: 20140414
  Serious: No
  Sender: FDA-Public Use
  Company Number: US-PFIZER INC-2013173436

PATIENT
  Age: 22 Year
  Sex: Female

DRUGS (7)
  1. PREDNISONE [Concomitant]
     Dosage: 20 MG, 1X/DAY (HS)
  2. PREDNISONE [Concomitant]
     Dosage: 20 MG, 3X/DAY
     Route: 048
     Dates: start: 20130607
  3. PREDNISONE [Concomitant]
     Dosage: 20 MG, 2X/DAY
     Route: 048
     Dates: start: 20130608
  4. PREDNISONE [Concomitant]
     Dosage: 20 MG, 1X/DAY
     Route: 048
     Dates: start: 20130609, end: 20130610
  5. DEPO-PROVERA [Suspect]
     Indication: CONTRACEPTION
     Dosage: 150 MG, UNK
     Route: 030
     Dates: start: 20130606
  6. BENADRYL [Concomitant]
     Dosage: 25 MG, (Q 6 H)
     Route: 048
  7. PREDNISONE [Concomitant]
     Dosage: 40 MG, UNK
     Dates: start: 20130606

REACTIONS (4)
  - Injection site pain [Recovered/Resolved]
  - Movement disorder [Recovered/Resolved]
  - Local swelling [Recovered/Resolved]
  - Pain [Recovered/Resolved]
